FAERS Safety Report 9466583 (Version 4)
Quarter: 2013Q4

REPORT INFORMATION
  Report Type: Spontaneous
  Country: US (occurrence: US)
  Receive Date: 20130820
  Receipt Date: 20131204
  Transmission Date: 20140711
  Serious: Yes (Other)
  Sender: FDA-Public Use
  Company Number: US-JNJFOC-20130806261

PATIENT
  Age: 64 Year
  Sex: Male
  Weight: 102.51 kg

DRUGS (9)
  1. INVOKANA [Suspect]
     Indication: TYPE 2 DIABETES MELLITUS
     Route: 048
     Dates: start: 20130805
  2. INVOKANA [Suspect]
     Indication: TYPE 2 DIABETES MELLITUS
     Route: 048
     Dates: start: 20130703, end: 20130802
  3. PRAVASTATIN [Suspect]
     Indication: HYPERLIPIDAEMIA
     Route: 048
     Dates: end: 20130710
  4. PRAVASTATIN [Suspect]
     Indication: HYPERLIPIDAEMIA
     Route: 048
     Dates: start: 20130711, end: 20130802
  5. JANUMET [Concomitant]
     Indication: TYPE 2 DIABETES MELLITUS
     Dates: start: 20121206
  6. METOPROLOL [Concomitant]
     Indication: DIASTOLIC DYSFUNCTION
     Dates: start: 20121004
  7. LISINOPRIL [Concomitant]
     Indication: HYPERTENSION
     Dates: start: 20120426
  8. ASPIRIN [Concomitant]
     Indication: ANTICOAGULANT THERAPY
     Dates: start: 20120426
  9. LASIX [Concomitant]
     Indication: DIASTOLIC DYSFUNCTION
     Dates: start: 20121004

REACTIONS (5)
  - Rhabdomyolysis [Recovered/Resolved]
  - Renal failure acute [Recovered/Resolved]
  - Gastroenteritis [Unknown]
  - Presyncope [Unknown]
  - Chronic obstructive pulmonary disease [Unknown]
